FAERS Safety Report 8286500-5 (Version None)
Quarter: 2012Q2

REPORT INFORMATION
  Report Type: 
  Country: None (occurrence: None)
  Receive Date: 20120416
  Receipt Date: 20120410
  Transmission Date: 20120825
  Serious: Yes (Other)
  Sender: FDA-Public Use
  Company Number: JP-PFIZER INC-2010095929

PATIENT
  Age: 81 Year
  Sex: Female

DRUGS (11)
  1. LANSOPRAZOLE [Concomitant]
  2. GABAPENTIN [Suspect]
     Dosage: 1200 MG, 1X/DAY
     Dates: start: 20120201
  3. GABAPENTIN [Suspect]
     Dosage: 300 MG, 3X/DAY
  4. LYRICA [Interacting]
     Dosage: 75 MG, 2X/DAY
     Dates: start: 20120119
  5. MOTILIUM [Concomitant]
  6. LYRICA [Interacting]
     Indication: HERPES ZOSTER
     Dosage: 75 MG, 3X/DAY
     Route: 048
     Dates: start: 20100722
  7. LYRICA [Interacting]
     Dosage: 100 MG, 2X/DAY
     Route: 048
     Dates: start: 20120202
  8. LYRICA [Interacting]
     Dosage: 50 MG, 2X/DAY
  9. MORPHINE HYDROCHLORIDE [Interacting]
     Dosage: UNK
     Dates: start: 20090301
  10. GABAPENTIN [Suspect]
     Dosage: 1800 MG, 1X/DAY
     Route: 048
  11. LYRICA [Interacting]
     Dosage: 150 MG, 2X/DAY
     Route: 048

REACTIONS (13)
  - DRUG INTERACTION [None]
  - DIZZINESS [None]
  - FLATULENCE [None]
  - PRURITUS [None]
  - HEADACHE [None]
  - ABDOMINAL DISCOMFORT [None]
  - HERPES ZOSTER [None]
  - VISION BLURRED [None]
  - NAUSEA [None]
  - CONSTIPATION [None]
  - DRUG INEFFECTIVE [None]
  - PAIN [None]
  - POLLAKIURIA [None]
